FAERS Safety Report 5261730-5 (Version None)
Quarter: 2007Q1

REPORT INFORMATION
  Report Type: 
  Country: None (occurrence: None)
  Receive Date: 20070307
  Receipt Date: 20070221
  Transmission Date: 20070707
  Serious: Yes (Other)
  Sender: FDA-Public Use
  Company Number: 2007SP003392

PATIENT
  Age: 65 Year
  Sex: Female
  Weight: 70 kg

DRUGS (2)
  1. VIRAFERONPEG [Suspect]
     Dosage: 1.5 MCG/KG; QW
  2. REBETOL [Suspect]
     Dosage: 1000 MG

REACTIONS (5)
  - IMMUNOSUPPRESSION [None]
  - JC VIRUS INFECTION [None]
  - LYMPHOPENIA [None]
  - PROGRESSIVE MULTIFOCAL LEUKOENCEPHALOPATHY [None]
  - SARCOIDOSIS [None]
